FAERS Safety Report 5956404-9 (Version None)
Quarter: 2008Q4

REPORT INFORMATION
  Report Type: 
  Country: None (occurrence: None)
  Receive Date: 20081118
  Receipt Date: 20081106
  Transmission Date: 20090506
  Serious: Yes (Hospitalization)
  Sender: FDA-Public Use
  Company Number: CH-AVENTIS-200816122EU

PATIENT
  Age: 61 Year
  Sex: Female

DRUGS (12)
  1. LASIX [Suspect]
     Dosage: DOSE: UNK
     Dates: start: 20080509, end: 20080509
  2. CISPLATIN EBEWE [Suspect]
     Dosage: DOSE: UNK
     Route: 041
     Dates: start: 20080508, end: 20080511
  3. VELBE [Suspect]
     Dosage: DOSE: UNK
     Route: 041
     Dates: start: 20080507, end: 20080511
  4. FOSICOMP [Suspect]
     Route: 048
  5. ZOFRAN [Concomitant]
     Indication: NAUSEA
     Dosage: DOSE: UNK
     Dates: start: 20080507, end: 20080513
  6. ZOFRAN [Concomitant]
     Indication: VOMITING
     Dosage: DOSE: UNK
     Dates: start: 20080507, end: 20080513
  7. PRIMPERAN                          /00041901/ [Concomitant]
     Indication: NAUSEA
     Dosage: DOSE: UNK
     Dates: start: 20080513, end: 20080514
  8. PRIMPERAN                          /00041901/ [Concomitant]
     Indication: VOMITING
     Dosage: DOSE: UNK
     Dates: start: 20080513, end: 20080514
  9. APREPITANT [Concomitant]
     Dosage: DOSE: UNK
     Route: 048
     Dates: start: 20080507, end: 20080509
  10. DEXAMETHASONE TAB [Concomitant]
     Indication: NAUSEA
     Dosage: DOSE: UNK
     Dates: start: 20080507, end: 20080511
  11. DEXAMETHASONE TAB [Concomitant]
     Indication: VOMITING
     Dosage: DOSE: UNK
     Dates: start: 20080507, end: 20080511
  12. DACARBAZINE [Concomitant]
     Dosage: DOSE: UNK
     Dates: start: 20080507, end: 20080511

REACTIONS (2)
  - HYPONATRAEMIA [None]
  - INAPPROPRIATE ANTIDIURETIC HORMONE SECRETION [None]
